FAERS Safety Report 16920091 (Version 1)
Quarter: 2019Q4

REPORT INFORMATION
  Report Type: Spontaneous
  Country: NO (occurrence: NO)
  Receive Date: 20191015
  Receipt Date: 20191015
  Transmission Date: 20200122
  Serious: Yes (Other)
  Sender: FDA-Public Use
  Company Number: NO-TAKEDA-2019TUS053471

PATIENT
  Age: 19 Year
  Sex: Male

DRUGS (6)
  1. SOLU-MEDROL [Concomitant]
     Active Substance: METHYLPREDNISOLONE SODIUM SUCCINATE
     Dosage: 75 MILLIGRAM
  2. HBO                                /00023501/ [Concomitant]
     Dosage: UNK UNK, 5/WEEK
  3. INFLIXIMAB [Concomitant]
     Active Substance: INFLIXIMAB
     Dosage: UNK
     Dates: start: 201803
  4. ENTYVIO [Suspect]
     Active Substance: VEDOLIZUMAB
     Indication: COLITIS
     Dosage: UNK
     Route: 065
  5. ENTYVIO [Suspect]
     Active Substance: VEDOLIZUMAB
     Indication: GASTROENTERITIS
     Dosage: UNK
     Route: 065
  6. ALBUMIN [Concomitant]
     Active Substance: ALBUMIN HUMAN
     Dosage: 40 GRAM, QD

REACTIONS (4)
  - Skin disorder [Unknown]
  - Off label use [Unknown]
  - Gastrointestinal mucosal exfoliation [Unknown]
  - Enteritis [Unknown]
